FAERS Safety Report 7736736-4 (Version None)
Quarter: 2011Q3

REPORT INFORMATION
  Report Type: 
  Country: None (occurrence: None)
  Receive Date: 20110908
  Receipt Date: 20110831
  Transmission Date: 20111222
  Serious: Yes (Other)
  Sender: FDA-Public Use
  Company Number: PHHY2007CA01150

PATIENT
  Sex: Male

DRUGS (5)
  1. FLUOXETINE [Concomitant]
     Dosage: 60 MG, QD
     Route: 048
  2. SOFLAX [Concomitant]
     Dosage: 200 MG, QHS
     Route: 048
  3. LIPITOR [Concomitant]
     Dosage: 10 MG, QD
  4. CLOZAPINE [Suspect]
     Dosage: 700 MG, QD
     Route: 048
     Dates: start: 20071204
  5. CLOZAPINE [Suspect]
     Indication: SCHIZOPHRENIA
     Dosage: 800 MG, QD
     Route: 048
     Dates: start: 19970320

REACTIONS (2)
  - NON-HODGKIN'S LYMPHOMA [None]
  - DISEASE PROGRESSION [None]
